FAERS Safety Report 20716404 (Version 2)
Quarter: 2022Q2

REPORT INFORMATION
  Report Type: Spontaneous
  Country: US (occurrence: US)
  Receive Date: 20220416
  Receipt Date: 20220511
  Transmission Date: 20220720
  Serious: No
  Sender: FDA-Public Use
  Company Number: US-JNJFOC-20220424931

PATIENT
  Sex: Male

DRUGS (2)
  1. ZYTIGA [Suspect]
     Active Substance: ABIRATERONE ACETATE
     Indication: Product used for unknown indication
     Dosage: 4 TABLETS OF STRENGTH 250MG ONCE DIALY
     Route: 048
     Dates: start: 20211101
  2. COVID-19 VACCINE [Concomitant]
     Indication: Immunisation

REACTIONS (3)
  - Cough [Unknown]
  - Chest pain [Unknown]
  - Prostatic specific antigen increased [Recovering/Resolving]
